FAERS Safety Report 14456661 (Version 1)
Quarter: 2018Q1

REPORT INFORMATION
  Report Type: Spontaneous
  Country: US (occurrence: US)
  Receive Date: 20180130
  Receipt Date: 20180130
  Transmission Date: 20180509
  Serious: Yes (Other)
  Sender: FDA-Public Use
  Company Number: US-ALVOGEN-2018-ALVOGEN-094930

PATIENT
  Age: 14 Year
  Sex: Male

DRUGS (3)
  1. DOXORUBICIN [Suspect]
     Active Substance: DOXORUBICIN
     Indication: ADENOID CYSTIC CARCINOMA
  2. CARBOPLATIN. [Suspect]
     Active Substance: CARBOPLATIN
     Indication: ADENOID CYSTIC CARCINOMA
  3. CISPLATIN. [Suspect]
     Active Substance: CISPLATIN
     Indication: ADENOID CYSTIC CARCINOMA
     Dosage: VIA THE RIGHT EXTERNAL CAROTID ARTERY ON DAY 1 ; CYCLICAL
     Route: 013

REACTIONS (4)
  - Necrosis [Recovered/Resolved]
  - Dry eye [Unknown]
  - Inflammation [Recovered/Resolved]
  - Renal injury [Not Recovered/Not Resolved]
